FAERS Safety Report 7425351-8 (Version None)
Quarter: 2011Q2

REPORT INFORMATION
  Report Type: 
  Country: None (occurrence: None)
  Receive Date: 20110420
  Receipt Date: 20110328
  Transmission Date: 20111010
  Serious: Yes (Hospitalization, Other)
  Sender: FDA-Public Use
  Company Number: US-BAYER-201035882NA

PATIENT
  Age: 43 Year
  Sex: Female
  Weight: 74.83 kg

DRUGS (9)
  1. CALCIUM [Concomitant]
  2. YAZ [Suspect]
     Indication: PREMENSTRUAL SYNDROME
     Dosage: UNK
     Dates: start: 20070308, end: 20091001
  3. OCELLA [Suspect]
     Indication: PREMENSTRUAL SYNDROME
     Dosage: UNK
     Dates: start: 20070308, end: 20091001
  4. GABITRIL [Concomitant]
  5. SKELAXIN [Concomitant]
  6. FERROUS SULFATE TAB [Concomitant]
  7. COLACE [Concomitant]
  8. FENTANYL [Concomitant]
  9. VITAMIN D [Concomitant]

REACTIONS (8)
  - CHOLELITHIASIS [None]
  - ABDOMINAL PAIN UPPER [None]
  - GASTROOESOPHAGEAL REFLUX DISEASE [None]
  - PALPITATIONS [None]
  - UPPER EXTREMITY MASS [None]
  - LOWER EXTREMITY MASS [None]
  - GALLBLADDER PAIN [None]
  - GALLBLADDER DISORDER [None]
